FAERS Safety Report 9518489 (Version 1)
Quarter: 2013Q3

REPORT INFORMATION
  Report Type: Spontaneous
  Country: US (occurrence: None)
  Receive Date: 20130910
  Receipt Date: 20130910
  Transmission Date: 20140515
  Serious: Yes (Other)
  Sender: FDA-Public Use
  Company Number: DEP_01043_2013

PATIENT
  Age: 43 Year
  Sex: Female
  Weight: 81.65 kg

DRUGS (2)
  1. GRALISE [Suspect]
     Indication: NEURITIS
     Route: 048
     Dates: start: 20130902, end: 20130904
  2. GRALISE [Suspect]
     Indication: OFF LABEL USE
     Route: 048
     Dates: start: 20130902, end: 20130904

REACTIONS (1)
  - Haematemesis [None]
